FAERS Safety Report 5144391-5 (Version None)
Quarter: 2006Q4

REPORT INFORMATION
  Report Type: 
  Country: None (occurrence: None)
  Receive Date: 20061030
  Receipt Date: 20061018
  Transmission Date: 20070319
  Serious: Yes (Hospitalization, Other)
  Sender: FDA-Public Use
  Company Number: US200610003153

PATIENT
  Age: 87 Year
  Sex: Female

DRUGS (2)
  1. HUMULIN 70/30 [Suspect]
  2. HUMULIN 70/30 PEN (HUMULNI 70/30PEN) PEN,DISPOSABLE [Concomitant]

REACTIONS (7)
  - CEREBROVASCULAR ACCIDENT [None]
  - HEMIPARESIS [None]
  - PHARMACEUTICAL PRODUCT COMPLAINT [None]
  - RETINAL HAEMORRHAGE [None]
  - TREATMENT NONCOMPLIANCE [None]
  - VISUAL ACUITY REDUCED [None]
  - VISUAL DISTURBANCE [None]
